FAERS Safety Report 22283979 (Version 2)
Quarter: 2024Q3

REPORT INFORMATION
  Report Type: Spontaneous
  Country: AU (occurrence: AU)
  Receive Date: 20230504
  Receipt Date: 20240821
  Transmission Date: 20241017
  Serious: Yes (Hospitalization, Other)
  Sender: ANI
  Company Number: AU-ANIPHARMA-2023-AU-000122

PATIENT
  Age: 52 Year
  Sex: Female

DRUGS (13)
  1. ANASTROZOLE [Suspect]
     Active Substance: ANASTROZOLE
     Indication: Product used for unknown indication
     Dosage: 1 MG DAILY
     Route: 065
  2. LORATADINE [Suspect]
     Active Substance: LORATADINE
     Dosage: 10 MG DAILY / 40 MG DAILY
     Route: 065
  3. METFORMIN HYDROCHLORIDE [Suspect]
     Active Substance: METFORMIN HYDROCHLORIDE
     Dosage: 2 G DAILY
     Route: 065
  4. MONTELUKAST [Suspect]
     Active Substance: MONTELUKAST SODIUM
     Route: 065
  5. TOZINAMERAN [Suspect]
     Active Substance: TOZINAMERAN
     Dosage: DOSE TEXT: INTERVAL: 1 TOTAL
     Route: 042
  6. ESOMEPRAZOLE [Suspect]
     Active Substance: ESOMEPRAZOLE
     Dosage: 40 MG DAILY
     Route: 065
  7. ROSUVASTATIN [Suspect]
     Active Substance: ROSUVASTATIN\ROSUVASTATIN CALCIUM
     Dosage: 10 MG UNK
     Route: 065
  8. NOVORAPID [Suspect]
     Active Substance: INSULIN ASPART
     Dosage: 15 IU DAILY
     Route: 065
  9. INSULIN GLARGINE [Suspect]
     Active Substance: INSULIN GLARGINE
     Dosage: 36 IU DAILY
     Route: 065
  10. PHENERGAN [Suspect]
     Active Substance: PROMETHAZINE HYDROCHLORIDE
     Route: 065
  11. ALBUTEROL [Suspect]
     Active Substance: ALBUTEROL
     Route: 065
  12. APIXABAN [Suspect]
     Active Substance: APIXABAN
     Dosage: 10 MG DAILY
     Route: 065
  13. FAMOTIDINE [Suspect]
     Active Substance: FAMOTIDINE
     Dosage: 40 MG DAILY
     Route: 065

REACTIONS (17)
  - Respiratory failure [Unknown]
  - Swollen tongue [Not Recovered/Not Resolved]
  - Upper respiratory tract infection [Unknown]
  - Urticaria [Recovering/Resolving]
  - SARS-CoV-2 test positive [Unknown]
  - Viral test positive [Unknown]
  - Tongue injury [Unknown]
  - Respiratory syncytial virus test positive [Unknown]
  - Human rhinovirus test positive [Unknown]
  - Anaphylactic reaction [Unknown]
  - COVID-19 [Unknown]
  - Drug intolerance [Unknown]
  - Dyspnoea [Not Recovered/Not Resolved]
  - Mouth haemorrhage [Unknown]
  - Obstructive airways disorder [Unknown]
  - Pharyngeal swelling [Not Recovered/Not Resolved]
  - Pneumonia [Unknown]

NARRATIVE: CASE EVENT DATE: 20180718
